FAERS Safety Report 12133760 (Version 1)
Quarter: 2016Q1

REPORT INFORMATION
  Report Type: Spontaneous
  Country: CN (occurrence: CN)
  Receive Date: 20160301
  Receipt Date: 20160301
  Transmission Date: 20160526
  Serious: Yes (Other)
  Sender: FDA-Public Use
  Company Number: CN-ASTRAZENECA-2016SE21284

PATIENT
  Age: 27546 Day
  Sex: Female
  Weight: 43 kg

DRUGS (3)
  1. ESOMEPRAZOLE SODIUM. [Suspect]
     Active Substance: ESOMEPRAZOLE SODIUM
     Indication: GASTROINTESTINAL CARCINOMA
     Route: 041
     Dates: start: 20150806, end: 20150820
  2. SULBACTAM SODIUM [Concomitant]
     Active Substance: SULBACTAM SODIUM
  3. PIPERACILLIN SODIUM [Suspect]
     Active Substance: PIPERACILLIN SODIUM
     Indication: GASTROINTESTINAL CARCINOMA
     Route: 041
     Dates: start: 20150806, end: 20150820

REACTIONS (4)
  - Blood bilirubin unconjugated increased [Unknown]
  - Blood albumin increased [Unknown]
  - Gamma-glutamyltransferase increased [Unknown]
  - Hepatic function abnormal [Unknown]

NARRATIVE: CASE EVENT DATE: 20150812
